FAERS Safety Report 14502285 (Version 1)
Quarter: 2018Q1

REPORT INFORMATION
  Report Type: Spontaneous
  Country: NL (occurrence: NL)
  Receive Date: 20180208
  Receipt Date: 20180208
  Transmission Date: 20180509
  Serious: Yes (Hospitalization, Other)
  Sender: FDA-Public Use
  Company Number: NL-VISTAPHARM, INC.-VER201801-000310

PATIENT
  Age: 15 Month
  Sex: Male

DRUGS (9)
  1. VALPROIC ACID. [Suspect]
     Active Substance: VALPROIC ACID
  2. HYDROCODONE AND ACETAMINOPHEN [Suspect]
     Active Substance: ACETAMINOPHEN\HYDROCODONE
  3. TOPIRAMATE. [Suspect]
     Active Substance: TOPIRAMATE
  4. TOPIRAMATE. [Suspect]
     Active Substance: TOPIRAMATE
  5. VALPROIC ACID. [Suspect]
     Active Substance: VALPROIC ACID
     Indication: SEVERE MYOCLONIC EPILEPSY OF INFANCY
  6. CLOBAZAM [Concomitant]
     Active Substance: CLOBAZAM
     Indication: SEVERE MYOCLONIC EPILEPSY OF INFANCY
  7. TOPIRAMATE. [Suspect]
     Active Substance: TOPIRAMATE
     Indication: SEIZURE
  8. CLOBAZAM [Concomitant]
     Active Substance: CLOBAZAM
  9. HYDROCODONE AND ACETAMINOPHEN [Suspect]
     Active Substance: ACETAMINOPHEN\HYDROCODONE
     Indication: PYREXIA

REACTIONS (5)
  - Coagulation test abnormal [Unknown]
  - Hepatotoxicity [Recovering/Resolving]
  - Drug interaction [Recovering/Resolving]
  - Liver injury [Recovering/Resolving]
  - Transaminases increased [Recovered/Resolved]
